FAERS Safety Report 20119082 (Version 2)
Quarter: 2021Q4

REPORT INFORMATION
  Report Type: Report from Study
  Country: CN (occurrence: CN)
  Receive Date: 20211126
  Receipt Date: 20211201
  Transmission Date: 20220303
  Serious: Yes (Hospitalization)
  Sender: FDA-Public Use
  Company Number: CN-GLAXOSMITHKLINE-CN2021GSK240799

PATIENT
  Age: 63 Year
  Sex: Male
  Weight: 67 kg

DRUGS (7)
  1. NIRAPARIB [Suspect]
     Active Substance: NIRAPARIB
     Indication: Small cell lung cancer
     Dosage: 200 MG, QD
     Route: 048
     Dates: start: 20211102
  2. CATEQUENTINIB DIHYDROCHLORIDE [Suspect]
     Active Substance: CATEQUENTINIB DIHYDROCHLORIDE
     Indication: Small cell lung cancer
     Dosage: 12 MG, QD
     Route: 048
     Dates: start: 20211102, end: 20211110
  3. CATEQUENTINIB DIHYDROCHLORIDE [Suspect]
     Active Substance: CATEQUENTINIB DIHYDROCHLORIDE
     Dosage: 10 MG, QD
     Route: 048
     Dates: start: 20211123
  4. VITAMIN C [Concomitant]
     Active Substance: ASCORBIC ACID
     Indication: Nutritional supplementation
     Dosage: 2.5 G, QD
     Route: 041
     Dates: start: 20211030
  5. VITAMIN B6 [Concomitant]
     Active Substance: PYRIDOXINE HYDROCHLORIDE
     Indication: Nutritional supplementation
     Dosage: 100 G, QD
     Route: 042
     Dates: start: 20211030
  6. CODEINE PHOSPHATE [Concomitant]
     Active Substance: CODEINE PHOSPHATE
     Indication: Cough
     Dosage: 60 MG, TID
     Route: 048
     Dates: start: 20211031
  7. HYDROTALCITE CHEWABLE TABLETS [Concomitant]
     Indication: Gastric mucosal lesion
     Dosage: 1 G, TID
     Route: 048
     Dates: start: 20211110

REACTIONS (1)
  - Tumour haemorrhage [Recovered/Resolved]

NARRATIVE: CASE EVENT DATE: 20211110
